FAERS Safety Report 4797254-9 (Version None)
Quarter: 2005Q4

REPORT INFORMATION
  Report Type: 
  Country: None (occurrence: None)
  Receive Date: 20051013
  Receipt Date: 20050803
  Transmission Date: 20060501
  Serious: Yes (Death, Other)
  Sender: FDA-Public Use
  Company Number: PHEH2005US08624

PATIENT
  Age: 65 Year
  Sex: Female
  Weight: 61 kg

DRUGS (4)
  1. ZOMETA [Suspect]
     Indication: BREAST CANCER
     Dosage: 4 MG MONTHLY
     Dates: start: 20031201, end: 20050110
  2. TAXOL [Concomitant]
     Indication: BREAST CANCER
     Dosage: 170 MG, ONCE/SINGLE
     Route: 042
  3. TAXOTERE [Concomitant]
     Indication: BREAST CANCER
     Dosage: 100 MG, QW
     Route: 042
     Dates: start: 20040915, end: 20041203
  4. RADIATION THERAPY [Concomitant]
     Indication: METASTATIC NEOPLASM
     Dosage: UNK, UNK, T-11 TO T-12
     Dates: start: 20040301

REACTIONS (8)
  - BONE DISORDER [None]
  - BONE LESION [None]
  - BREAST CANCER METASTATIC [None]
  - DEEP VEIN THROMBOSIS [None]
  - ERYTHEMA [None]
  - OEDEMA MOUTH [None]
  - OSTEONECROSIS [None]
  - PAIN IN JAW [None]
